FAERS Safety Report 5501881-0 (Version None)
Quarter: 2007Q4

REPORT INFORMATION
  Report Type: 
  Country: None (occurrence: None)
  Receive Date: 20071030
  Receipt Date: 20071022
  Transmission Date: 20080405
  Serious: Yes (Hospitalization, Other)
  Sender: FDA-Public Use
  Company Number: PHBS2007IE03694

PATIENT

DRUGS (2)
  1. RECLAST [Suspect]
     Indication: OSTEITIS DEFORMANS
     Dosage: 5 MG, UNK
     Route: 042
     Dates: start: 20061122
  2. CALCIUM [Concomitant]
     Dosage: 500MG
     Route: 048

REACTIONS (5)
  - ASTHENIA [None]
  - GOUT [None]
  - HYPOCALCAEMIA [None]
  - MALAISE [None]
  - RESPIRATORY TRACT INFECTION [None]
